FAERS Safety Report 7046303-6 (Version None)
Quarter: 2010Q4

REPORT INFORMATION
  Report Type: 
  Country: None (occurrence: None)
  Receive Date: 20101014
  Receipt Date: 20101007
  Transmission Date: 20110411
  Serious: Yes (Hospitalization, Disabling)
  Sender: FDA-Public Use
  Company Number: B0678295A

PATIENT
  Sex: Female
  Weight: 72 kg

DRUGS (9)
  1. AVAMYS [Suspect]
     Dosage: 110MCG PER DAY
     Route: 045
     Dates: start: 20080101, end: 20100815
  2. SERETIDE [Suspect]
     Indication: ASTHMATIC CRISIS
     Route: 055
     Dates: end: 20091201
  3. NORVIR [Suspect]
     Indication: HIV INFECTION
     Dosage: 1TAB PER DAY
     Route: 048
  4. PREZISTA [Suspect]
     Indication: HIV INFECTION
     Dosage: 1TAB TWICE PER DAY
     Route: 048
  5. ISENTRESS [Concomitant]
     Indication: HIV INFECTION
  6. BRICANYL [Concomitant]
     Indication: ASTHMATIC CRISIS
  7. NAABAK [Concomitant]
     Route: 047
  8. AERIUS [Concomitant]
  9. CRESTOR [Concomitant]
     Dosage: 5MG PER DAY

REACTIONS (13)
  - AMYOTROPHY [None]
  - BLOOD CORTICOTROPHIN DECREASED [None]
  - BLOOD CORTISOL DECREASED [None]
  - CENTRAL OBESITY [None]
  - CUSHING'S SYNDROME [None]
  - DIABETES MELLITUS [None]
  - DRUG INTERACTION [None]
  - HYPERTENSION [None]
  - ILL-DEFINED DISORDER [None]
  - LIPOHYPERTROPHY [None]
  - MENSTRUAL DISORDER [None]
  - SKIN FRAGILITY [None]
  - SKIN STRIAE [None]
